FAERS Safety Report 10403949 (Version 1)
Quarter: 2014Q3

REPORT INFORMATION
  Report Type: Spontaneous
  Country: KR (occurrence: KR)
  Receive Date: 20140822
  Receipt Date: 20140822
  Transmission Date: 20150326
  Serious: Yes (Other)
  Sender: FDA-Public Use
  Company Number: KR-ABBVIE-14P-090-1275815-00

PATIENT

DRUGS (21)
  1. TRANEXAMIC ACID. [Concomitant]
     Active Substance: TRANEXAMIC ACID
     Indication: SURGERY
     Dosage: LOADING DOSE
  2. SUFENTANIL [Concomitant]
     Active Substance: SUFENTANIL
     Dosage: ANESTHESIA MAINTAINED
  3. MIDAZOLAM [Concomitant]
     Active Substance: MIDAZOLAM\MIDAZOLAM HYDROCHLORIDE
     Dosage: COMMENCEMENT CARDIOPULMONARY BYPASS
  4. VECURONIUM [Concomitant]
     Active Substance: VECURONIUM BROMIDE
     Indication: NEUROMUSCULAR BLOCKADE
     Dosage: 8-10 MG/H
  5. CRYSTALLOID SOLUTION [Concomitant]
     Indication: HAEMORRHAGE
     Dosage: 68 ML/KG/H
  6. COLLOID [Concomitant]
     Indication: HAEMORRHAGE
  7. ACETATED RINGER [Concomitant]
     Indication: CARDIOPULMONARY BYPASS
  8. TRANEXAMIC ACID. [Concomitant]
     Active Substance: TRANEXAMIC ACID
     Dosage: 200 MG/H INFUSION DURING OPERATION
  9. SUFENTANIL [Concomitant]
     Active Substance: SUFENTANIL
     Indication: ANAESTHESIA
     Dosage: 1.03.0 MCG/KG ANESTHESIA INDUCTION
  10. SUFENTANIL [Concomitant]
     Active Substance: SUFENTANIL
     Dosage: COMMENCEMENT CARDIOPULMONARY BYPASS
  11. MIDAZOLAM [Concomitant]
     Active Substance: MIDAZOLAM\MIDAZOLAM HYDROCHLORIDE
     Indication: INDUCTION OF ANAESTHESIA
     Dosage: ANESTHESIA INDUCTION
  12. HEPARIN [Concomitant]
     Active Substance: HEPARIN SODIUM
     Indication: CARDIOPULMONARY BYPASS
  13. REMIFENTANIL [Concomitant]
     Active Substance: REMIFENTANIL
     Indication: SEDATION
  14. SODIUM BICARBONATE. [Concomitant]
     Active Substance: SODIUM BICARBONATE
     Indication: CARDIOPULMONARY BYPASS
  15. ROCURONIUM [Concomitant]
     Active Substance: ROCURONIUM BROMIDE
     Indication: NEUROMUSCULAR BLOCKADE
  16. VASOPRESSIN [Concomitant]
     Active Substance: VASOPRESSIN
     Indication: VASOPRESSIVE THERAPY
  17. SEVOFLURANE. [Suspect]
     Active Substance: SEVOFLURANE
     Indication: ANAESTHESIA
     Dosage: 0.61.5% ANESTHESIA MAINTAINED
  18. ALBUMIN HUMAN [Concomitant]
     Active Substance: ALBUMIN (HUMAN)
     Indication: CARDIOPULMONARY BYPASS
  19. TRANEXAMIC ACID. [Concomitant]
     Active Substance: TRANEXAMIC ACID
     Dosage: LOADING DOSE
  20. MANNITOL. [Concomitant]
     Active Substance: MANNITOL
     Indication: CARDIOPULMONARY BYPASS
  21. NOREPINEPHRINE [Concomitant]
     Active Substance: NOREPINEPHRINE\NOREPINEPHRINE BITARTRATE
     Indication: VASOPRESSIVE THERAPY

REACTIONS (1)
  - Renal failure acute [Unknown]
